FAERS Safety Report 5241686-1 (Version None)
Quarter: 2007Q1

REPORT INFORMATION
  Report Type: 
  Country: None (occurrence: None)
  Receive Date: 20070220
  Receipt Date: 20070206
  Transmission Date: 20070707
  Serious: Yes (Hospitalization)
  Sender: FDA-Public Use
  Company Number: FR-ELI_LILLY_AND_COMPANY-FR200702001548

PATIENT
  Age: 70 Year
  Sex: Female

DRUGS (6)
  1. FORTEO [Suspect]
     Indication: OSTEOPOROSIS
     Dosage: 20 UG, DAILY (1/D)
     Route: 058
     Dates: start: 20050718
  2. DAFALGAN [Concomitant]
  3. METEOSPASMYL [Concomitant]
  4. NEURONTIN [Concomitant]
  5. CHOPHYTOL [Concomitant]
  6. COZAAR [Concomitant]

REACTIONS (1)
  - MYOCARDIAL INFARCTION [None]
